FAERS Safety Report 6663673-9 (Version None)
Quarter: 2010Q2

REPORT INFORMATION
  Report Type: 
  Country: None (occurrence: None)
  Receive Date: 20100401
  Receipt Date: 20100322
  Transmission Date: 20101027
  Serious: Yes (Hospitalization)
  Sender: FDA-Public Use
  Company Number: US-ROCHE-693244

PATIENT
  Sex: Male
  Weight: 121.1 kg

DRUGS (27)
  1. KLONOPIN [Suspect]
     Indication: DRUG USE FOR UNKNOWN INDICATION
     Dosage: TDD: 5 MG BID
     Route: 065
     Dates: start: 20050101
  2. OCRELIZUMAB [Suspect]
     Indication: RHEUMATOID ARTHRITIS
     Dosage: 48 WEEKS UNDER OPEN-LABEL OCRELIZUMAB - LAST DOSE PRIOR TO THE ONSET OF SAE WAS ON 09 FEB 2010.
     Route: 042
     Dates: start: 20090101
  3. BLINDED OCRELIZUMAB [Suspect]
     Indication: RHEUMATOID ARTHRITIS
     Dosage: 48 WEEKS UNDER BLINDED OCRELIZUMAB.
     Route: 042
     Dates: start: 20080320
  4. LEVOTHYROXINE SODIUM [Suspect]
     Indication: DRUG USE FOR UNKNOWN INDICATION
     Route: 048
     Dates: start: 20051112
  5. METHOTREXATE [Suspect]
     Indication: DRUG USE FOR UNKNOWN INDICATION
     Dosage: TDD: 17.5 MG/WEEK
     Route: 065
     Dates: start: 20070701
  6. METHOTREXATE [Suspect]
     Route: 065
     Dates: start: 20090812
  7. PREDNISONE TAB [Suspect]
     Indication: DRUG USE FOR UNKNOWN INDICATION
     Route: 065
     Dates: start: 20080206
  8. PREDNISONE TAB [Suspect]
     Route: 065
     Dates: start: 20090812
  9. DARVOCET [Suspect]
     Indication: DRUG USE FOR UNKNOWN INDICATION
     Route: 048
     Dates: start: 20070101
  10. SINEQUAN [Suspect]
     Indication: DRUG USE FOR UNKNOWN INDICATION
     Dosage: TDD: 150 MG BID
     Route: 048
     Dates: start: 19900101
  11. HYDROCHLOROTHIAZIDE [Suspect]
     Indication: DRUG USE FOR UNKNOWN INDICATION
     Route: 048
     Dates: start: 19910101
  12. PROZAC [Suspect]
     Indication: DRUG USE FOR UNKNOWN INDICATION
     Route: 065
     Dates: start: 20050101
  13. PROZAC [Suspect]
     Route: 065
  14. LOVASTATIN [Suspect]
     Indication: DRUG USE FOR UNKNOWN INDICATION
     Dosage: TDD: 20 MG QD
     Route: 048
     Dates: start: 20050101
  15. SINGULAIR [Suspect]
     Indication: DRUG USE FOR UNKNOWN INDICATION
     Dosage: TDD: 10 MG QD
     Route: 065
     Dates: start: 20010101
  16. MAXAIR [Suspect]
     Indication: DRUG USE FOR UNKNOWN INDICATION
     Dosage: 2 PUFFS AS NECESSARY
     Route: 065
     Dates: start: 20030101
  17. ASPIRIN [Suspect]
     Indication: DRUG USE FOR UNKNOWN INDICATION
     Dosage: TDD:  81 MG QD
     Route: 065
     Dates: start: 20060101
  18. PRILOSEC [Suspect]
     Indication: DRUG USE FOR UNKNOWN INDICATION
     Route: 065
     Dates: start: 20080521
  19. FLOMAX [Suspect]
     Indication: DRUG USE FOR UNKNOWN INDICATION
     Route: 065
     Dates: start: 20090711
  20. XOPENEX [Suspect]
     Indication: DRUG USE FOR UNKNOWN INDICATION
     Dosage: INHALER SOLUTION, TDD: 0.63/3 IU
     Route: 065
     Dates: start: 19990101
  21. IRON [Suspect]
     Indication: DRUG USE FOR UNKNOWN INDICATION
     Route: 065
     Dates: start: 20080808
  22. MULTI-VITAMIN [Suspect]
     Indication: DRUG USE FOR UNKNOWN INDICATION
     Dosage: TDD: 1 QD
     Route: 065
     Dates: start: 20080612
  23. FOLIC ACID [Suspect]
     Indication: DRUG USE FOR UNKNOWN INDICATION
     Route: 048
     Dates: start: 20070730
  24. ALEVE (CAPLET) [Concomitant]
     Indication: DRUG USE FOR UNKNOWN INDICATION
     Dates: start: 20060612, end: 20080612
  25. BENICAR HCT [Concomitant]
     Indication: DRUG USE FOR UNKNOWN INDICATION
     Dates: start: 20080225
  26. DIOVAN [Concomitant]
     Indication: DRUG USE FOR UNKNOWN INDICATION
     Dates: start: 20060101, end: 20080224
  27. DOXEPIN HCL [Concomitant]
     Indication: DRUG USE FOR UNKNOWN INDICATION

REACTIONS (1)
  - DYSPNOEA [None]
